FAERS Safety Report 11611328 (Version 2)
Quarter: 2016Q1

REPORT INFORMATION
  Report Type: Report from Study
  Country: PL (occurrence: PL)
  Receive Date: 20151008
  Receipt Date: 20160328
  Transmission Date: 20160525
  Serious: Yes (Hospitalization)
  Sender: FDA-Public Use
  Company Number: PHHO2012PL011883

PATIENT
  Age: 8 Year
  Sex: Female
  Weight: 19.6 kg

DRUGS (1)
  1. SOMATROPIN [Suspect]
     Active Substance: SOMATROPIN
     Indication: SMALL FOR DATES BABY
     Dosage: 0.65 MG, UNK
     Route: 058
     Dates: start: 20090514

REACTIONS (3)
  - Abdominal pain [Recovered/Resolved]
  - Helicobacter infection [Recovered/Resolved]
  - Duodenal ulcer [Recovered/Resolved]

NARRATIVE: CASE EVENT DATE: 20120214
